FAERS Safety Report 4699999-8 (Version None)
Quarter: 2005Q2

REPORT INFORMATION
  Report Type: 
  Country: None (occurrence: None)
  Receive Date: 20050623
  Receipt Date: 29950609
  Transmission Date: 20051028
  Serious: Yes (Hospitalization)
  Sender: FDA-Public Use
  Company Number: 200313277BCC

PATIENT
  Age: 81 Year
  Sex: Male
  Weight: 80.7403 kg

DRUGS (13)
  1. ALEVE [Suspect]
     Indication: DEMENTIA ALZHEIMER'S TYPE
     Dosage: BID, ORAL
     Route: 048
     Dates: start: 20030430
  2. VASOTEC [Concomitant]
     Indication: PROPHYLAXIS
  3. ASPIRIN [Concomitant]
  4. ZOCOR [Concomitant]
  5. SYNTHROID [Concomitant]
  6. GLIPIZIDE [Concomitant]
  7. VITAMIN B COMPLEX CAP [Concomitant]
  8. ASCORBIC ACID [Concomitant]
  9. VITAMIN E [Concomitant]
  10. VITAMIN A [Concomitant]
  11. VITAMIN D [Concomitant]
  12. CALCIUM GLUCONATE [Concomitant]
  13. BILBERRY [Concomitant]

REACTIONS (2)
  - MYOCARDIAL INFARCTION [None]
  - VASCULAR OCCLUSION [None]
